FAERS Safety Report 6892411-X (Version None)
Quarter: 2010Q3

REPORT INFORMATION
  Report Type: 
  Country: None (occurrence: None)
  Receive Date: 20100731
  Receipt Date: 20080512
  Transmission Date: 20110219
  Serious: Yes (Other)
  Sender: FDA-Public Use
  Company Number: US-PFIZER INC-2008034961

PATIENT
  Sex: Male
  Weight: 69 kg

DRUGS (20)
  1. NEURONTIN [Suspect]
     Indication: NEUROPATHY PERIPHERAL
  2. LYRICA [Suspect]
     Indication: NEUROPATHY PERIPHERAL
     Route: 048
     Dates: start: 20080315, end: 20080301
  3. GABAPENTIN [Suspect]
     Indication: NEUROPATHY PERIPHERAL
  4. TOPROL-XL [Concomitant]
  5. MORPHINE [Concomitant]
  6. ASCORBIC ACID [Concomitant]
  7. ASASANTIN [Concomitant]
  8. LANTUS [Concomitant]
  9. TRAZODONE [Concomitant]
  10. CELEXA [Concomitant]
  11. VITAMIN B-12 [Concomitant]
  12. FOLIC ACID [Concomitant]
  13. GALANTAMINE [Concomitant]
  14. LORTAB [Concomitant]
  15. LASIX [Concomitant]
  16. AMLODIPINE [Concomitant]
  17. OMEPRAZOLE [Concomitant]
  18. ALPRAZOLAM [Concomitant]
  19. TERAZOSIN HCL [Concomitant]
  20. SIMVASTATIN [Concomitant]

REACTIONS (5)
  - ASTHENIA [None]
  - BALANCE DISORDER [None]
  - HALLUCINATION [None]
  - HYPERSENSITIVITY [None]
  - TREMOR [None]
